FAERS Safety Report 7097182-2 (Version None)
Quarter: 2010Q4

REPORT INFORMATION
  Report Type: 
  Country: None (occurrence: None)
  Receive Date: 20101111
  Receipt Date: 20100225
  Transmission Date: 20110411
  Serious: No
  Sender: FDA-Public Use
  Company Number: US-KINGPHARMUSA00001-K201000231

PATIENT
  Sex: Female
  Weight: 88.435 kg

DRUGS (10)
  1. EMBEDA [Suspect]
     Indication: BACK PAIN
     Dosage: 30 MG, BID
     Route: 048
  2. EMBEDA [Suspect]
     Dosage: 30 MG, QAM
     Route: 048
  3. CYMBALTA [Concomitant]
     Dosage: UNK
  4. ELAVIL [Concomitant]
     Dosage: UNK
  5. IRON [Concomitant]
     Dosage: UNK
  6. KLONOPIN [Concomitant]
     Dosage: UNK
  7. LASIX [Concomitant]
     Dosage: UNK
  8. LYRICA [Concomitant]
     Dosage: UNK
  9. DIGOXIN [Concomitant]
     Dosage: UNK
  10. TRICOR [Concomitant]
     Dosage: UNK

REACTIONS (2)
  - HEADACHE [None]
  - NAUSEA [None]
